FAERS Safety Report 14546155 (Version 2)
Quarter: 2018Q1

REPORT INFORMATION
  Report Type: Spontaneous
  Country: US (occurrence: US)
  Receive Date: 20180219
  Receipt Date: 20180219
  Transmission Date: 20180509
  Serious: No
  Sender: FDA-Public Use
  Company Number: US-IPSEN BIOPHARMACEUTICALS, INC.-2017-00557

PATIENT
  Sex: Female

DRUGS (3)
  1. DYSPORT [Suspect]
     Active Substance: ABOBOTULINUMTOXINA
     Indication: OFF LABEL USE
     Dosage: 100 IU
     Route: 065
     Dates: start: 20161026, end: 20161026
  2. DYSPORT [Suspect]
     Active Substance: ABOBOTULINUMTOXINA
     Indication: OFF LABEL USE
     Dosage: NOT REPORTED
     Route: 065
     Dates: start: 20161026, end: 20161026
  3. PERLANE [Concomitant]
     Active Substance: HYALURONIC ACID
     Indication: SKIN COSMETIC PROCEDURE

REACTIONS (4)
  - Drug ineffective [Unknown]
  - Wrong technique in product usage process [Unknown]
  - Off label use [Unknown]
  - Inappropriate schedule of drug administration [Unknown]
